FAERS Safety Report 19453557 (Version 9)
Quarter: 2021Q3

REPORT INFORMATION
  Report Type: Report from Study
  Country: CN (occurrence: CN)
  Receive Date: 20210623
  Receipt Date: 20210826
  Transmission Date: 20211014
  Serious: Yes (Life-Threatening, Hospitalization)
  Sender: FDA-Public Use
  Company Number: CN-ROCHE-2852649

PATIENT
  Age: 62 Year
  Sex: Male
  Weight: 45.2 kg

DRUGS (43)
  1. AMLODIPINE BESYLATE. [Concomitant]
     Active Substance: AMLODIPINE BESYLATE
     Dates: start: 2013
  2. POTASSIUM CHLORIDE. [Concomitant]
     Active Substance: POTASSIUM CHLORIDE
     Dates: start: 20210616, end: 20210618
  3. ATEZOLIZUMAB. [Suspect]
     Active Substance: ATEZOLIZUMAB
     Indication: OESOPHAGEAL SQUAMOUS CELL CARCINOMA METASTATIC
     Route: 041
     Dates: start: 20210526
  4. METOCLOPRAMIDE HYDROCHLORIDE. [Concomitant]
     Active Substance: METOCLOPRAMIDE HYDROCHLORIDE
     Indication: VOMITING
  5. POTASSIUM CHLORIDE. [Concomitant]
     Active Substance: POTASSIUM CHLORIDE
     Dates: start: 20210629, end: 20210630
  6. CIMETIDINE [Concomitant]
     Active Substance: CIMETIDINE
     Route: 042
     Dates: start: 20210526, end: 20210526
  7. GRANISETRON HYDROCHLORIDE. [Concomitant]
     Active Substance: GRANISETRON HYDROCHLORIDE
     Indication: NAUSEA
     Dates: start: 20210531, end: 20210531
  8. OMEPRAZOLE SODIUM [Concomitant]
     Active Substance: OMEPRAZOLE SODIUM
     Indication: VOMITING
  9. GLUCOSE AND SODIUM CHLORIDE [Concomitant]
     Active Substance: DEXTROSE\SODIUM CHLORIDE
     Dates: start: 20210701, end: 20210701
  10. POTASSIUM CHLORIDE. [Concomitant]
     Active Substance: POTASSIUM CHLORIDE
     Dates: start: 20210525, end: 20210527
  11. DEXAMETHASONE SODIUM PHOSPHATE. [Concomitant]
     Active Substance: DEXAMETHASONE SODIUM PHOSPHATE
     Route: 042
     Dates: start: 20210526, end: 20210526
  12. GRANISETRON HYDROCHLORIDE. [Concomitant]
     Active Substance: GRANISETRON HYDROCHLORIDE
     Indication: VOMITING
  13. VITAMIN C [Concomitant]
     Active Substance: ASCORBIC ACID
     Dates: start: 20210616, end: 20210618
  14. LANSOPRAZOLE. [Concomitant]
     Active Substance: LANSOPRAZOLE
     Indication: NAUSEA
     Dates: start: 20210525, end: 20210527
  15. OMEPRAZOLE SODIUM [Concomitant]
     Active Substance: OMEPRAZOLE SODIUM
     Indication: NAUSEA
     Dates: start: 20210601, end: 20210602
  16. IPRATROPIUM BROMIDE. [Concomitant]
     Active Substance: IPRATROPIUM BROMIDE
     Dates: start: 20210702, end: 20210705
  17. PACLITAXEL. [Suspect]
     Active Substance: PACLITAXEL
     Indication: OESOPHAGEAL SQUAMOUS CELL CARCINOMA METASTATIC
     Route: 042
     Dates: start: 20210526
  18. STRUCTOLIPID [Concomitant]
     Active Substance: EGG PHOSPHOLIPIDS\GLYCERIN\SOYBEAN OIL
     Dates: start: 20210525, end: 20210526
  19. PROMETHAZINE HYDROCHLORIDE. [Concomitant]
     Active Substance: PROMETHAZINE HYDROCHLORIDE
     Dates: start: 20210526, end: 20210526
  20. TORASEMIDE [Concomitant]
     Active Substance: TORSEMIDE
     Indication: POLYURIA
     Route: 042
     Dates: start: 20210526, end: 20210526
  21. ACETYLCYSTEINE. [Concomitant]
     Active Substance: ACETYLCYSTEINE
     Route: 048
     Dates: start: 20210617, end: 20210618
  22. INDOMETACIN [Concomitant]
     Active Substance: INDOMETHACIN
     Route: 054
     Dates: start: 20210616, end: 20210616
  23. COMPOUND SODIUM CHLORIDE INJECTION [Concomitant]
     Active Substance: SODIUM CHLORIDE
     Dates: start: 20210616, end: 20210616
  24. FAT EMULSION INJECTION (C14?24) [Concomitant]
     Dates: start: 20210601, end: 20210601
  25. CEFOPERAZONE SODIUM AND SULBACTAM SODIUM [Concomitant]
     Active Substance: CEFOPERAZONE SODIUM\SULBACTAM SODIUM
     Route: 042
     Dates: start: 20210629, end: 20210704
  26. BUDESONIDE. [Concomitant]
     Active Substance: BUDESONIDE
     Route: 055
     Dates: start: 20210702, end: 20210705
  27. METOCLOPRAMIDE HYDROCHLORIDE. [Concomitant]
     Active Substance: METOCLOPRAMIDE HYDROCHLORIDE
     Indication: NAUSEA
     Dates: start: 20210531, end: 20210531
  28. AZASETRON HYDROCHLORIDE;SODIUM CHLORIDE [Concomitant]
     Dates: start: 20210526, end: 20210526
  29. AMBROXOL HYDROCHLORIDE [Concomitant]
     Active Substance: AMBROXOL HYDROCHLORIDE
     Route: 042
     Dates: start: 20210616, end: 20210616
  30. SODIUM POTASSIUM MAGNESIUM CALCIUM AND GLUCOSE [Concomitant]
     Route: 042
     Dates: start: 20210531, end: 20210531
  31. STRUCTURAL FAT EMULSION INJECTION (C6?24) [Concomitant]
     Route: 042
     Dates: start: 20210630, end: 20210630
  32. INSULIN INJECTION [Concomitant]
     Active Substance: INSULIN NOS
     Dates: start: 20210701, end: 20210704
  33. TIRAGOLUMAB. [Suspect]
     Active Substance: TIRAGOLUMAB
     Indication: OESOPHAGEAL SQUAMOUS CELL CARCINOMA METASTATIC
     Route: 042
     Dates: start: 20210526
  34. VITAMIN C [Concomitant]
     Active Substance: ASCORBIC ACID
     Dates: start: 20210525, end: 20210527
  35. VITAMIN C [Concomitant]
     Active Substance: ASCORBIC ACID
     Dates: start: 20210629, end: 20210629
  36. LANSOPRAZOLE. [Concomitant]
     Active Substance: LANSOPRAZOLE
     Indication: VOMITING
     Dates: start: 20210617, end: 20210618
  37. COMPOUND AMINO ACID INJECTION (18AA?V) [Concomitant]
     Active Substance: AMINO ACIDS, SOURCE UNSPECIFIED
     Dates: start: 20210531, end: 20210531
  38. COMPOUND AMINO ACID INJECTION (20AA) [Concomitant]
     Route: 042
     Dates: start: 20210601, end: 20210602
  39. INVERT SUGAR AND ELECTROLYTES [Concomitant]
     Dates: start: 20210701, end: 20210701
  40. CISPLATIN. [Suspect]
     Active Substance: CISPLATIN
     Indication: OESOPHAGEAL SQUAMOUS CELL CARCINOMA METASTATIC
     Route: 042
     Dates: start: 20210526
  41. GLUCOSE AND SODIUM CHLORIDE [Concomitant]
     Active Substance: DEXTROSE\SODIUM CHLORIDE
     Dates: start: 20210525
  42. ESOMEPRAZOLE SODIUM. [Concomitant]
     Active Substance: ESOMEPRAZOLE SODIUM
     Indication: NAUSEA
     Dates: start: 20210531, end: 20210531
  43. ESOMEPRAZOLE SODIUM. [Concomitant]
     Active Substance: ESOMEPRAZOLE SODIUM
     Indication: VOMITING

REACTIONS (2)
  - Respiratory failure [Recovered/Resolved]
  - Pneumonia [Not Recovered/Not Resolved]

NARRATIVE: CASE EVENT DATE: 20210616
